FAERS Safety Report 7290172-6 (Version None)
Quarter: 2011Q1

REPORT INFORMATION
  Report Type: 
  Country: None (occurrence: None)
  Receive Date: 20110214
  Receipt Date: 20110202
  Transmission Date: 20110831
  Serious: Yes (Hospitalization, Other)
  Sender: FDA-Public Use
  Company Number: PHHY2010IE77718

PATIENT
  Sex: Female

DRUGS (2)
  1. CO-DIOVAN [Suspect]
     Dosage: 160/25 MG
     Route: 048
  2. CENTRUM [Concomitant]

REACTIONS (3)
  - FEELING ABNORMAL [None]
  - CHEST DISCOMFORT [None]
  - MALAISE [None]
